FAERS Safety Report 11323423 (Version 2)
Quarter: 2015Q3

REPORT INFORMATION
  Report Type: Report from Study
  Country: JP (occurrence: JP)
  Receive Date: 20150730
  Receipt Date: 20150928
  Transmission Date: 20151125
  Serious: Yes (Death, Other)
  Sender: FDA-Public Use
  Company Number: JP-EISAI MEDICAL RESEARCH-EC-2015-009058

PATIENT
  Age: 54 Year
  Sex: Female

DRUGS (2)
  1. LEVOTHYROXINE SODIUM HYDRATE [Concomitant]
  2. LENVIMA [Suspect]
     Active Substance: LENVATINIB
     Indication: THYROID CANCER
     Route: 048
     Dates: start: 20150608, end: 20150622

REACTIONS (2)
  - Pneumonia [Unknown]
  - Soft tissue necrosis [Fatal]

NARRATIVE: CASE EVENT DATE: 20150609
